FAERS Safety Report 14763701 (Version 1)
Quarter: 2018Q2

REPORT INFORMATION
  Report Type: Spontaneous
  Country: SE (occurrence: SE)
  Receive Date: 20180416
  Receipt Date: 20180416
  Transmission Date: 20180711
  Serious: Yes (Other)
  Sender: FDA-Public Use
  Company Number: SE-TEVA-2018-SE-879516

PATIENT
  Sex: Female

DRUGS (1)
  1. TRAMADOL RETARD ACTAVIS [Suspect]
     Active Substance: TRAMADOL
     Indication: BACK PAIN
     Route: 065
     Dates: end: 2014

REACTIONS (1)
  - Epilepsy [Unknown]

NARRATIVE: CASE EVENT DATE: 2013
